FAERS Safety Report 4497092-0 (Version None)
Quarter: 2004Q4

REPORT INFORMATION
  Report Type: 
  Country: None (occurrence: None)
  Receive Date: 20041110
  Receipt Date: 20041102
  Transmission Date: 20050328
  Serious: Yes (Hospitalization)
  Sender: FDA-Public Use
  Company Number: US-JNJFOC-20040606330

PATIENT
  Sex: Male
  Weight: 82.1 kg

DRUGS (15)
  1. INFLIXIMAB [Suspect]
     Route: 042
  2. INFLIXIMAB [Suspect]
     Route: 042
  3. INFLIXIMAB [Suspect]
     Route: 042
  4. INFLIXIMAB [Suspect]
     Route: 042
  5. INFLIXIMAB [Suspect]
     Route: 042
  6. INFLIXIMAB [Suspect]
     Route: 042
  7. INFLIXIMAB [Suspect]
     Route: 042
  8. INFLIXIMAB [Suspect]
     Route: 042
  9. INFLIXIMAB [Suspect]
     Route: 042
  10. INFLIXIMAB [Suspect]
     Route: 042
  11. INFLIXIMAB [Suspect]
     Route: 042
  12. INFLIXIMAB [Suspect]
     Indication: CROHN'S DISEASE
     Route: 042
  13. MERCAPTOPURINE [Suspect]
     Indication: CROHN'S DISEASE
  14. MESALAMINE [Suspect]
     Indication: CROHN'S DISEASE
  15. ANTIBIOTICS [Suspect]

REACTIONS (5)
  - BLASTOMYCOSIS [None]
  - GASTROINTESTINAL DISORDER [None]
  - NAUSEA [None]
  - PNEUMONIA BLASTOMYCES [None]
  - SINUSITIS [None]
